FAERS Safety Report 5063629-6 (Version None)
Quarter: 2006Q3

REPORT INFORMATION
  Report Type: 
  Country: None (occurrence: None)
  Receive Date: 20060727
  Receipt Date: 20060724
  Transmission Date: 20061208
  Serious: Yes (Hospitalization)
  Sender: FDA-Public Use
  Company Number: FR-SANOFI-SYNTHELABO-F01200601722

PATIENT
  Sex: Male

DRUGS (16)
  1. TEMESTA [Concomitant]
     Dosage: UNK
     Route: 065
     Dates: start: 20050607
  2. THERALENE [Concomitant]
     Dosage: UNK
     Route: 065
     Dates: start: 20050607
  3. OMEPRAZOLE [Concomitant]
     Dosage: UNK
     Route: 065
     Dates: start: 20050516
  4. SOLU-MEDROL [Concomitant]
     Dosage: UNK
     Route: 065
     Dates: start: 20050517
  5. KABIVEN [Concomitant]
     Dosage: UNK
     Route: 065
     Dates: start: 20050527
  6. STILNOX [Concomitant]
     Dosage: UNK
     Route: 065
     Dates: start: 20050411, end: 20050515
  7. FUNGIZONE [Concomitant]
     Dosage: UNK
     Route: 065
     Dates: start: 20050509
  8. BICARBONATE [Concomitant]
     Dosage: UNK
     Route: 065
     Dates: start: 20050509
  9. ZOPHREN [Concomitant]
     Dosage: UNK
     Route: 065
     Dates: start: 20050511, end: 20050515
  10. LASILIX [Concomitant]
     Dosage: UNK
     Route: 065
     Dates: start: 20050502
  11. ALDACTONE [Concomitant]
     Dosage: UNK
     Route: 065
     Dates: start: 20050502
  12. SOLUPRED [Concomitant]
     Dosage: UNK
     Route: 065
     Dates: start: 20050503, end: 20050509
  13. CAPECITABINE [Suspect]
     Route: 048
     Dates: start: 20050509, end: 20050516
  14. CAPECITABINE [Suspect]
     Route: 048
  15. OXALIPLATIN [Suspect]
     Indication: COLORECTAL CANCER METASTATIC
     Route: 042
     Dates: start: 20050509, end: 20050509
  16. OXALIPLATIN [Suspect]
     Route: 042

REACTIONS (2)
  - DISEASE PROGRESSION [None]
  - GENERAL PHYSICAL HEALTH DETERIORATION [None]
